FAERS Safety Report 21144040 (Version 2)
Quarter: 2022Q3

REPORT INFORMATION
  Report Type: Report from Study
  Country: US (occurrence: US)
  Receive Date: 20220728
  Receipt Date: 20220902
  Transmission Date: 20221026
  Serious: No
  Sender: FDA-Public Use
  Company Number: US-NOVARTISTESTPH-NVSC2022US170684

PATIENT
  Sex: Male

DRUGS (1)
  1. ENTRESTO [Suspect]
     Active Substance: SACUBITRIL\VALSARTAN
     Indication: Product used for unknown indication
     Dosage: 1 DOSAGE FORM, BID
     Route: 048

REACTIONS (7)
  - Sneezing [Unknown]
  - Chest discomfort [Unknown]
  - Apathy [Unknown]
  - Insomnia [Unknown]
  - Lower respiratory tract infection [Unknown]
  - Speech disorder [Unknown]
  - Product use issue [Unknown]
